FAERS Safety Report 25676636 (Version 1)
Quarter: 2025Q3

REPORT INFORMATION
  Report Type: Spontaneous
  Country: EU (occurrence: EU)
  Receive Date: 20250813
  Receipt Date: 20250813
  Transmission Date: 20251020
  Serious: Yes (Life-Threatening, Hospitalization)
  Sender: ELI LILLY AND COMPANY
  Company Number: None

PATIENT
  Age: 79 Year
  Sex: Male
  Weight: 74 kg

DRUGS (4)
  1. ERBITUX [Suspect]
     Active Substance: CETUXIMAB
     Indication: Chemotherapy
     Route: 042
     Dates: start: 20210513, end: 20210513
  2. PROSTAMNIC [Concomitant]
     Indication: Benign prostatic hyperplasia
     Dosage: .4 MG, UNK
     Route: 048
  3. PERINDOPRIL [Concomitant]
     Active Substance: PERINDOPRIL
     Indication: Hypertension
     Dosage: 10 MG, UNK
     Route: 048
  4. HYPLAFIN [Concomitant]
     Indication: Benign prostatic hyperplasia
     Dosage: 5 MG, DAILY
     Route: 048

REACTIONS (5)
  - Respiratory arrest [Recovered/Resolved]
  - Presyncope [Recovered/Resolved]
  - Pulse absent [Recovered/Resolved]
  - Hypotension [Recovered/Resolved]
  - Cardiac arrest [Recovered/Resolved]

NARRATIVE: CASE EVENT DATE: 20210513
